FAERS Safety Report 21292778 (Version 11)
Quarter: 2024Q3

REPORT INFORMATION
  Report Type: Report from Study
  Country: US (occurrence: US)
  Receive Date: 20220905
  Receipt Date: 20240821
  Transmission Date: 20241017
  Serious: Yes (Other)
  Sender: UCB
  Company Number: US-UCBSA-2022051054

PATIENT
  Age: 24 Year
  Sex: Female

DRUGS (4)
  1. BRIVARACETAM [Suspect]
     Active Substance: BRIVARACETAM
     Indication: Seizure
     Dosage: 100 MILLIGRAM, 2X/DAY (BID)
     Route: 048
  2. BRIVARACETAM [Suspect]
     Active Substance: BRIVARACETAM
     Indication: Epilepsy
     Dosage: 50MG + 100MG- 1 TAB EACH TWICE DAILY/ 150 MG TWICE DAILY
     Route: 048
  3. NAYZILAM [Suspect]
     Active Substance: MIDAZOLAM
     Indication: Seizure
     Dosage: 5MG-1 SPRAY AS NEEDED
     Route: 045
  4. NAYZILAM [Suspect]
     Active Substance: MIDAZOLAM
     Indication: Epilepsy

REACTIONS (15)
  - Seizure [Unknown]
  - Lip and/or oral cavity cancer [Not Recovered/Not Resolved]
  - Dizziness [Unknown]
  - Hypersomnia [Not Recovered/Not Resolved]
  - Nasopharyngitis [Not Recovered/Not Resolved]
  - Pyrexia [Not Recovered/Not Resolved]
  - Memory impairment [Unknown]
  - In vitro fertilisation [Not Recovered/Not Resolved]
  - Vomiting [Not Recovered/Not Resolved]
  - Oral infection [Not Recovered/Not Resolved]
  - Tooth loss [Unknown]
  - Therapy interrupted [Unknown]
  - Product availability issue [Unknown]
  - Off label use [Unknown]
  - Prescribed overdose [Unknown]

NARRATIVE: CASE EVENT DATE: 20220821
